FAERS Safety Report 15082863 (Version 1)
Quarter: 2018Q2

REPORT INFORMATION
  Report Type: Spontaneous
  Country: US (occurrence: US)
  Receive Date: 20180628
  Receipt Date: 20180628
  Transmission Date: 20180711
  Serious: Yes (Other)
  Sender: FDA-Public Use
  Company Number: US-JNJFOC-20180628116

PATIENT
  Age: 58 Year
  Sex: Female

DRUGS (2)
  1. INVOKAMET [Suspect]
     Active Substance: CANAGLIFLOZIN\METFORMIN HYDROCHLORIDE
     Indication: TYPE 2 DIABETES MELLITUS
     Dosage: 50/1000 (UNITS UNSPECIFIED)
     Route: 048
     Dates: start: 20151005, end: 20170607
  2. LANTUS [Concomitant]
     Active Substance: INSULIN GLARGINE
     Dosage: VGO 40 PLUS 36, 77 UNITS/ DAY AND 10 U BED
     Route: 065

REACTIONS (3)
  - Chronic myeloid leukaemia [Unknown]
  - Off label use [Unknown]
  - Drug prescribing error [Unknown]

NARRATIVE: CASE EVENT DATE: 20151005
